FAERS Safety Report 6129168-6 (Version None)
Quarter: 2009Q1

REPORT INFORMATION
  Report Type: 
  Country: None (occurrence: None)
  Receive Date: 20090323
  Receipt Date: 20090323
  Transmission Date: 20090719
  Serious: No
  Sender: FDA-Public Use
  Company Number: None

PATIENT
  Age: 72 Year
  Sex: Male
  Weight: 170 kg

DRUGS (3)
  1. ZOMETA [Suspect]
     Indication: PAIN
     Dosage: 5 MG ONCE IV
     Route: 042
     Dates: start: 20090210, end: 20090210
  2. ZOMETA [Suspect]
     Indication: PYREXIA
     Dosage: 5 MG ONCE IV
     Route: 042
     Dates: start: 20090210, end: 20090210
  3. ZOMETA [Suspect]
     Indication: VOMITING
     Dosage: 5 MG ONCE IV
     Route: 042
     Dates: start: 20090210, end: 20090210

REACTIONS (5)
  - ARTHRALGIA [None]
  - BONE PAIN [None]
  - PAIN [None]
  - PYREXIA [None]
  - VOMITING [None]
